FAERS Safety Report 24953141 (Version 2)
Quarter: 2025Q1

REPORT INFORMATION
  Report Type: Spontaneous
  Country: US (occurrence: US)
  Receive Date: 20250211
  Receipt Date: 20250324
  Transmission Date: 20250408
  Serious: Yes (Other)
  Sender: ROCHE
  Company Number: US-ROCHE-10000204232

PATIENT
  Age: 56 Year
  Sex: Male
  Weight: 69.2 kg

DRUGS (2)
  1. ALECENSA [Suspect]
     Active Substance: ALECTINIB HYDROCHLORIDE
     Indication: Lung neoplasm malignant
     Route: 048
     Dates: start: 20210223
  2. LEVOTHYROXINE [Concomitant]
     Active Substance: LEVOTHYROXINE

REACTIONS (1)
  - Brain neoplasm [Recovered/Resolved]

NARRATIVE: CASE EVENT DATE: 20250117
